FAERS Safety Report 22648223 (Version 2)
Quarter: 2023Q2

REPORT INFORMATION
  Report Type: Report from Study
  Country: CA (occurrence: CA)
  Receive Date: 20230628
  Receipt Date: 20230629
  Transmission Date: 20230721
  Serious: Yes (Other)
  Sender: FDA-Public Use
  Company Number: CA-BAYER-2023A088300

PATIENT
  Sex: Female

DRUGS (1)
  1. EYLEA [Suspect]
     Active Substance: AFLIBERCEPT
     Indication: Retinal vein occlusion
     Dosage: UNK, STRENGTH: 40 MG/ML
     Dates: start: 20230203

REACTIONS (4)
  - Blindness [Unknown]
  - Eye inflammation [Unknown]
  - Retinal oedema [Unknown]
  - Visual impairment [Unknown]
